FAERS Safety Report 5294650-0 (Version None)
Quarter: 2007Q2

REPORT INFORMATION
  Report Type: 
  Country: None (occurrence: None)
  Receive Date: 20070412
  Receipt Date: 20070406
  Transmission Date: 20071010
  Serious: Yes (Hospitalization, Other)
  Sender: FDA-Public Use
  Company Number: GR-AVENTIS-200712180GDDC

PATIENT
  Age: 38 Year
  Sex: Female
  Weight: 117 kg

DRUGS (7)
  1. LANTUS [Suspect]
     Indication: DIABETES MELLITUS NON-INSULIN-DEPENDENT
     Dosage: DOSE: UNK
     Dates: start: 20060523
  2. LANTUS [Suspect]
     Route: 058
     Dates: start: 20070220
  3. LISPRO [Suspect]
     Indication: DIABETES MELLITUS NON-INSULIN-DEPENDENT
     Dosage: DOSE: UNK
     Dates: start: 20060523
  4. LISPRO [Suspect]
     Route: 058
     Dates: start: 20070220
  5. DIOVAN [Concomitant]
     Dosage: DOSE: UNK
  6. CARVEDILOL [Concomitant]
  7. GLUCOPHAGE [Concomitant]

REACTIONS (1)
  - WEIGHT INCREASED [None]
